FAERS Safety Report 9303881 (Version 1)
Quarter: 2013Q2

REPORT INFORMATION
  Report Type: Spontaneous
  Country: US (occurrence: US)
  Receive Date: 20130522
  Receipt Date: 20130522
  Transmission Date: 20140414
  Serious: Yes (Other)
  Sender: FDA-Public Use
  Company Number: US-GLAXOSMITHKLINE-A1023709A

PATIENT
  Age: 65 Year
  Sex: Female

DRUGS (16)
  1. BENLYSTA [Suspect]
     Indication: SYSTEMIC LUPUS ERYTHEMATOSUS
     Route: 042
     Dates: start: 20130507
  2. ASPIRIN LOW DOSE [Concomitant]
  3. CO Q 10 [Concomitant]
  4. CRESTOR [Concomitant]
  5. EFFEXOR [Concomitant]
  6. FLEXERIL [Concomitant]
  7. LYRICA [Concomitant]
  8. NEXIUM [Concomitant]
  9. NORVASC [Concomitant]
  10. PLAQUENIL [Concomitant]
  11. MIRALAX [Concomitant]
  12. POTASSIUM SUPPLEMENT [Concomitant]
  13. PRIMIDONE [Concomitant]
  14. VITAMIN D [Concomitant]
  15. EVOXAC [Concomitant]
  16. LOSARTAN [Concomitant]

REACTIONS (10)
  - Anaphylactic shock [Recovered/Resolved]
  - Pruritus [Recovered/Resolved]
  - Throat irritation [Recovered/Resolved]
  - Throat tightness [Recovered/Resolved]
  - Chills [Recovered/Resolved]
  - Feeling hot [Recovered/Resolved]
  - Generalised erythema [Recovered/Resolved]
  - Rash [Recovered/Resolved]
  - Urticaria [Recovered/Resolved]
  - Nausea [Recovered/Resolved]
